FAERS Safety Report 6734697-8 (Version None)
Quarter: 2010Q2

REPORT INFORMATION
  Report Type: 
  Country: None (occurrence: None)
  Receive Date: 20100519
  Receipt Date: 20100519
  Transmission Date: 20101027
  Serious: No
  Sender: FDA-Public Use
  Company Number: None

PATIENT
  Sex: Female
  Weight: 77.1 kg

DRUGS (1)
  1. REMICADE [Suspect]
     Indication: ARTHRITIS
     Dosage: 385 MG EVERY 6 WEEKS IV DRIP
     Route: 041
     Dates: start: 20090109, end: 20100514

REACTIONS (3)
  - NAUSEA [None]
  - OCULAR HYPERAEMIA [None]
  - RASH [None]
